FAERS Safety Report 7828891-2 (Version None)
Quarter: 2011Q4

REPORT INFORMATION
  Report Type: 
  Country: None (occurrence: None)
  Receive Date: 20111020
  Receipt Date: 20100302
  Transmission Date: 20120403
  Serious: No
  Sender: FDA-Public Use
  Company Number: US-BAYER-201015479NA

PATIENT
  Age: 45 Year
  Sex: Female

DRUGS (1)
  1. CIPROFLOXACIN [Suspect]
     Indication: GASTRIC INFECTION
     Dosage: UNK
     Dates: start: 20091201

REACTIONS (2)
  - PARAESTHESIA [None]
  - TREMOR [None]
